FAERS Safety Report 23673239 (Version 5)
Quarter: 2024Q2

REPORT INFORMATION
  Report Type: Spontaneous
  Country: US (occurrence: US)
  Receive Date: 20240326
  Receipt Date: 20240628
  Transmission Date: 20240715
  Serious: Yes (Other)
  Sender: FDA-Public Use
  Company Number: US-PFIZER INC-PV202400034486

PATIENT
  Age: 65 Year
  Sex: Female
  Weight: 67.13 kg

DRUGS (4)
  1. GENOTROPIN [Suspect]
     Active Substance: SOMATROPIN
     Indication: Hypopituitarism
     Dosage: 1 MG, DAILY
     Dates: start: 20240309
  2. GENOTROPIN [Suspect]
     Active Substance: SOMATROPIN
     Indication: Growth hormone deficiency
     Dosage: 5 MG, 1X/DAY
     Route: 058
  3. LISINOPRIL [Concomitant]
     Active Substance: LISINOPRIL
     Indication: Myocardial infarction
     Dosage: UNK
  4. COREG [Concomitant]
     Active Substance: CARVEDILOL
     Indication: Hypertension
     Dosage: UNK

REACTIONS (10)
  - Nephrolithiasis [Unknown]
  - Wrong technique in device usage process [Unknown]
  - Product communication issue [Unknown]
  - Injection site pain [Unknown]
  - Arthralgia [Not Recovered/Not Resolved]
  - Asthenia [Unknown]
  - Fatigue [Unknown]
  - Decreased appetite [Unknown]
  - Nausea [Unknown]
  - Insomnia [Unknown]

NARRATIVE: CASE EVENT DATE: 20240401
